FAERS Safety Report 22136206 (Version 1)
Quarter: 2023Q1

REPORT INFORMATION
  Report Type: Spontaneous
  Country: CZ (occurrence: CZ)
  Receive Date: 20230324
  Receipt Date: 20230324
  Transmission Date: 20230418
  Serious: Yes (Other)
  Sender: FDA-Public Use
  Company Number: SK-BAYER-2023A035732

PATIENT
  Age: 49 Year
  Sex: Male

DRUGS (6)
  1. KOGENATE [Suspect]
     Active Substance: ANTIHEMOPHILIC FACTOR, HUMAN RECOMBINANT
     Dosage: UNK
     Dates: start: 2016
  2. KOVALTRY [Suspect]
     Active Substance: ANTIHEMOPHILIC FACTOR, HUMAN RECOMBINANT
     Dosage: UNK
     Dates: start: 201904
  3. KOVALTRY [Suspect]
     Active Substance: ANTIHEMOPHILIC FACTOR, HUMAN RECOMBINANT
     Dosage: UNK, TO TREAT THE MUSCLE HAEMATOMA
  4. KOVALTRY [Suspect]
     Active Substance: ANTIHEMOPHILIC FACTOR, HUMAN RECOMBINANT
     Dosage: UNK, TO TREAT THE SPONTANEOUS BLEEDING INTO THE MUSCLES OF THE LEFT LEG
  5. KOVALTRY [Suspect]
     Active Substance: ANTIHEMOPHILIC FACTOR, HUMAN RECOMBINANT
     Dosage: UNK, TO TREAT THE SPONTANEOUS BLEEDING INTO THE MUSCLES OF THE RIGHT FOREARM
  6. KOVALTRY [Suspect]
     Active Substance: ANTIHEMOPHILIC FACTOR, HUMAN RECOMBINANT
     Dosage: 1 DF,  TO TREAT OTHER MINOR INJURY-RELATED BLEEDING EPISODES INTO SMALL JOINTS

REACTIONS (5)
  - Joint resurfacing surgery [None]
  - Haematoma muscle [Recovered/Resolved]
  - Haematoma muscle [Recovered/Resolved]
  - Muscle haemorrhage [Recovered/Resolved]
  - Haemarthrosis [Recovered/Resolved]

NARRATIVE: CASE EVENT DATE: 20180201
